FAERS Safety Report 6061364-9 (Version None)
Quarter: 2009Q1

REPORT INFORMATION
  Report Type: 
  Country: None (occurrence: None)
  Receive Date: 20090202
  Receipt Date: 20090113
  Transmission Date: 20090719
  Serious: Yes (Other)
  Sender: FDA-Public Use
  Company Number: US-BAYER-US-2005-007656

PATIENT
  Age: 57 Year
  Sex: Female

DRUGS (4)
  1. MAGNEVIST [Suspect]
     Indication: NUCLEAR MAGNETIC RESONANCE IMAGING BRAIN
  2. THIAMINE HCL [Concomitant]
     Indication: HYPERTENSIVE CRISIS
  3. MULTI-VITAMINS [Concomitant]
     Indication: HYPERTENSIVE CRISIS
  4. ANTIHYPERTENSIVES [Concomitant]
     Indication: HYPERTENSIVE CRISIS

REACTIONS (1)
  - TOXIC ENCEPHALOPATHY [None]
